FAERS Safety Report 8166770-4 (Version None)
Quarter: 2012Q1

REPORT INFORMATION
  Report Type: 
  Country: None (occurrence: None)
  Receive Date: 20120221
  Receipt Date: 20120202
  Transmission Date: 20120608
  Serious: Yes (Death)
  Sender: FDA-Public Use
  Company Number: 2012020030

PATIENT
  Age: 13 Year
  Sex: Female

DRUGS (8)
  1. LORAZEPAM [Suspect]
     Dosage: ORAL
     Route: 048
  2. QUETIAPINE FUMARATE [Suspect]
     Dosage: ORAL
     Route: 048
  3. OLANZAPINE [Suspect]
     Dosage: ORAL
     Route: 048
  4. TEMAZEPAM [Suspect]
     Dosage: ORAL
     Route: 048
  5. OXCARBAZEPINE [Suspect]
     Dosage: ORAL
     Route: 048
  6. TRAZODONE HCL [Suspect]
     Dosage: ORAL
     Route: 048
  7. ZOLPIDEM [Suspect]
     Dosage: ORAL
     Route: 048
  8. FLUOXETINE [Suspect]
     Dosage: ORAL
     Route: 048

REACTIONS (2)
  - CARDIAC ARREST [None]
  - RESPIRATORY ARREST [None]
